FAERS Safety Report 5531458-2 (Version None)
Quarter: 2007Q4

REPORT INFORMATION
  Report Type: 
  Country: None (occurrence: None)
  Receive Date: 20071128
  Receipt Date: 20071128
  Transmission Date: 20080405
  Serious: Yes (Life-Threatening, Hospitalization)
  Sender: FDA-Public Use
  Company Number: None

PATIENT
  Age: 39 Year
  Sex: Male
  Weight: 104.3273 kg

DRUGS (1)
  1. COMPAZINE [Suspect]
     Indication: HEADACHE
     Dosage: IV DRIP
     Route: 041
     Dates: start: 20071121, end: 20071121

REACTIONS (7)
  - ABNORMAL BEHAVIOUR [None]
  - AGITATION [None]
  - AKATHISIA [None]
  - ANXIETY [None]
  - DEMENTIA [None]
  - DISCOMFORT [None]
  - SUICIDAL IDEATION [None]
